FAERS Safety Report 5820524-X (Version None)
Quarter: 2008Q3

REPORT INFORMATION
  Report Type: 
  Country: None (occurrence: None)
  Receive Date: 20080724
  Receipt Date: 20070919
  Transmission Date: 20090109
  Serious: No
  Sender: FDA-Public Use
  Company Number: A0683053A

PATIENT
  Age: 61 Year
  Sex: Female

DRUGS (5)
  1. AVANDIA [Suspect]
     Dosage: 4MG PER DAY
     Route: 048
     Dates: start: 20040101
  2. TYKERB [Suspect]
     Indication: BREAST CANCER
     Dosage: 250MCG PER DAY
     Route: 048
     Dates: start: 20070501
  3. DILANTIN [Concomitant]
  4. GLUCOPHAGE [Concomitant]
  5. GLIMEPIRIDE [Concomitant]

REACTIONS (2)
  - DIARRHOEA [None]
  - DRUG INEFFECTIVE [None]
